FAERS Safety Report 7914199-3 (Version None)
Quarter: 2011Q4

REPORT INFORMATION
  Report Type: 
  Country: None (occurrence: None)
  Receive Date: 20111115
  Receipt Date: 20111107
  Transmission Date: 20120403
  Serious: Yes (Other)
  Sender: FDA-Public Use
  Company Number: JP-SANOFI-AVENTIS-2011SA073884

PATIENT

DRUGS (3)
  1. DOCETAXEL [Suspect]
     Route: 065
  2. ETOPOSIDE [Suspect]
     Route: 065
  3. CARBOPLATIN [Suspect]
     Route: 065

REACTIONS (3)
  - NEOPLASM MALIGNANT [None]
  - NERVOUS SYSTEM DISORDER [None]
  - MENOPAUSE [None]
